FAERS Safety Report 9785211 (Version 2)
Quarter: 2014Q1

REPORT INFORMATION
  Report Type: Spontaneous
  Country: KR (occurrence: KR)
  Receive Date: 20131227
  Receipt Date: 20140107
  Transmission Date: 20141002
  Serious: Yes (Other)
  Sender: FDA-Public Use
  Company Number: KR-RANBAXY-2013RR-76410

PATIENT
  Age: 69 Year
  Sex: Male

DRUGS (2)
  1. RISPERIDONE [Suspect]
     Indication: DELUSIONAL DISORDER, UNSPECIFIED TYPE
     Dosage: 2 MG/DAY
     Route: 065
  2. DONEPEZIL [Suspect]
     Indication: COGNITIVE DISORDER
     Dosage: 10 MG/DAY
     Route: 065

REACTIONS (1)
  - Parkinsonism [Recovered/Resolved]
